FAERS Safety Report 20456156 (Version 1)
Quarter: 2022Q1

REPORT INFORMATION
  Report Type: Spontaneous
  Country: JP (occurrence: JP)
  Receive Date: 20220210
  Receipt Date: 20220210
  Transmission Date: 20220423
  Serious: Yes (Life-Threatening)
  Sender: FDA-Public Use
  Company Number: JP-MSD-2202JPN001011J

PATIENT
  Age: 82 Year
  Sex: Male
  Weight: 59 kg

DRUGS (24)
  1. BRIDION [Suspect]
     Active Substance: SUGAMMADEX
     Indication: Neuromuscular blockade reversal
     Dosage: 200 MILLIGRAM, QD
     Route: 042
     Dates: start: 20211220, end: 20211220
  2. DROPERIDOL [Suspect]
     Active Substance: DROPERIDOL
     Indication: Prophylaxis of nausea and vomiting
     Dosage: 0.625 MILLIGRAM, QD
     Route: 042
     Dates: start: 20211220, end: 20211220
  3. LEVOBUPIVACAINE HYDROCHLORIDE [Suspect]
     Active Substance: LEVOBUPIVACAINE HYDROCHLORIDE
     Indication: Anaesthesia procedure
     Dosage: 50 MILLIGRAM, QD
     Route: 051
     Dates: start: 20211220, end: 20211220
  4. AMLODIPINE BESYLATE [Concomitant]
     Active Substance: AMLODIPINE BESYLATE
     Dosage: UNK MILLIGRAM
     Route: 065
  5. ROSUVASTATIN CALCIUM [Concomitant]
     Active Substance: ROSUVASTATIN CALCIUM
     Dosage: UNK
     Route: 065
  6. RABEPRAZOLE SODIUM [Concomitant]
     Active Substance: RABEPRAZOLE SODIUM
     Dosage: UNK MILLIGRAM
     Route: 065
  7. TENELIGLIPTIN [Concomitant]
     Active Substance: TENELIGLIPTIN
     Dosage: UNK MILLIGRAM
     Route: 065
  8. REBAMIPIDE [Concomitant]
     Active Substance: REBAMIPIDE
     Dosage: UNK MILLIGRAM
     Route: 065
  9. ASPIRIN\DIHYDROXYALUMINUM AMINOACETATE ANHYDROUS\MAGNESIUM CARBONATE [Concomitant]
     Active Substance: ASPIRIN\DIHYDROXYALUMINUM AMINOACETATE ANHYDROUS\MAGNESIUM CARBONATE
     Dosage: UNK
     Route: 048
  10. REPAGLINIDE [Concomitant]
     Active Substance: REPAGLINIDE
     Dosage: UNK MILLIGRAM
     Route: 065
  11. SEVOFLURANE [Concomitant]
     Active Substance: SEVOFLURANE
     Dosage: UNK
     Route: 065
     Dates: start: 20211220, end: 20211220
  12. ROCURONIUM BROMIDE [Concomitant]
     Active Substance: ROCURONIUM BROMIDE
     Dosage: UNK MILLIGRAM PER MILLILITRE
     Route: 065
     Dates: start: 20211220, end: 20211220
  13. REMIFENTANIL HYDROCHLORIDE [Concomitant]
     Active Substance: REMIFENTANIL HYDROCHLORIDE
     Dosage: UNK MILLIGRAM
     Route: 042
     Dates: start: 20211220, end: 20211220
  14. PROPOFOL [Concomitant]
     Active Substance: PROPOFOL
     Dosage: UNK MILLILITER
     Route: 042
     Dates: start: 20211220, end: 20211220
  15. FENTANYL CITRATE [Concomitant]
     Active Substance: FENTANYL CITRATE
     Dosage: 0.1 MILLIGRAM
     Route: 051
     Dates: start: 20211220, end: 20211220
  16. FENTANYL CITRATE [Concomitant]
     Active Substance: FENTANYL CITRATE
     Dosage: 0.5 MILLIGRAM
     Route: 051
     Dates: start: 20211220, end: 20211220
  17. EPHEDRINE HYDROCHLORIDE [Concomitant]
     Active Substance: EPHEDRINE HYDROCHLORIDE
     Dosage: UNK MILLIGRAM
     Route: 051
     Dates: start: 20211220, end: 20211220
  18. PHENYLEPHRINE HYDROCHLORIDE [Concomitant]
     Active Substance: PHENYLEPHRINE HYDROCHLORIDE
     Dosage: UNK MILLIGRAM
     Route: 051
     Dates: start: 20211220, end: 20211220
  19. PHENYLEPHRINE HYDROCHLORIDE [Concomitant]
     Active Substance: PHENYLEPHRINE HYDROCHLORIDE
     Dosage: 8 MILLIGRAM
     Route: 051
     Dates: start: 20211220, end: 20211220
  20. PHENYLEPHRINE HYDROCHLORIDE [Concomitant]
     Active Substance: PHENYLEPHRINE HYDROCHLORIDE
     Dosage: 8 MILLIGRAM
     Route: 051
     Dates: start: 20211220, end: 20211220
  21. ACETAMINOPHEN [Concomitant]
     Active Substance: ACETAMINOPHEN
     Dosage: UNK MILLIGRAM
     Route: 042
     Dates: start: 20211220, end: 20211220
  22. NICORANDIL [Concomitant]
     Active Substance: NICORANDIL
     Dosage: UNK MILLIGRAM
     Route: 041
     Dates: start: 20211220, end: 20211220
  23. BICANATE [Concomitant]
     Active Substance: CALCIUM CHLORIDE\MAGNESIUM CHLORIDE\POTASSIUM CHLORIDE\SODIUM BICARBONATE\SODIUM CHLORIDE\TRISODIUM
     Dosage: UNK
     Route: 065
     Dates: start: 20211220, end: 20211220
  24. CEFAZOLIN SODIUM [Concomitant]
     Active Substance: CEFAZOLIN SODIUM
     Dosage: UNK GRAM
     Route: 041
     Dates: start: 20211220, end: 20211220

REACTIONS (2)
  - Kounis syndrome [Recovering/Resolving]
  - Anaphylactic reaction [Recovering/Resolving]

NARRATIVE: CASE EVENT DATE: 20211220
